FAERS Safety Report 6892857-X (Version None)
Quarter: 2010Q3

REPORT INFORMATION
  Report Type: 
  Country: None (occurrence: None)
  Receive Date: 20100731
  Receipt Date: 20081023
  Transmission Date: 20110219
  Serious: No
  Sender: FDA-Public Use
  Company Number: US-PFIZER INC-2008066002

PATIENT
  Sex: Female
  Weight: 59.1 kg

DRUGS (6)
  1. ANTIVERT [Suspect]
     Indication: VERTIGO
  2. TENORMIN [Concomitant]
  3. BENICAR [Concomitant]
  4. ESTRACE [Concomitant]
  5. ACETYLSALICYLIC ACID SRT [Concomitant]
  6. BENADRYL [Concomitant]

REACTIONS (3)
  - DIZZINESS [None]
  - NAUSEA [None]
  - SOMNOLENCE [None]
